FAERS Safety Report 18627011 (Version 1)
Quarter: 2020Q4

REPORT INFORMATION
  Report Type: Spontaneous
  Country: US (occurrence: US)
  Receive Date: 20201217
  Receipt Date: 20201217
  Transmission Date: 20210114
  Serious: No
  Sender: FDA-Public Use
  Company Number: US-GILEAD-2020-0509521

PATIENT
  Age: 65 Year
  Sex: Male

DRUGS (4)
  1. KALETRA [Concomitant]
     Active Substance: LOPINAVIR\RITONAVIR
  2. TRUVADA [Suspect]
     Active Substance: EMTRICITABINE\TENOFOVIR DISOPROXIL FUMARATE
     Indication: HIV INFECTION
     Route: 065
  3. ISENTRESS [Concomitant]
     Active Substance: RALTEGRAVIR POTASSIUM
  4. BIAXIN [Concomitant]
     Active Substance: CLARITHROMYCIN

REACTIONS (3)
  - Sleep disorder [Unknown]
  - Sleep terror [Unknown]
  - Blood blister [Recovered/Resolved]
